FAERS Safety Report 7830102-9 (Version None)
Quarter: 2011Q4

REPORT INFORMATION
  Report Type: 
  Country: None (occurrence: None)
  Receive Date: 20111018
  Receipt Date: 20111006
  Transmission Date: 20120403
  Serious: Yes (Other)
  Sender: FDA-Public Use
  Company Number: 1000024614

PATIENT
  Age: 73 Year
  Sex: Male

DRUGS (3)
  1. AMIODARONE HCL [Concomitant]
  2. COVERSYL (PERINDOPRIL ARGININE) (PERINDOPRIL ARGININE) [Concomitant]
  3. NEBIVOLOL HCL [Suspect]
     Dosage: 5 MG (5 MG,1 IN 1 D)
     Dates: start: 20110701

REACTIONS (5)
  - ANGINA PECTORIS [None]
  - MUSCULOSKELETAL PAIN [None]
  - OSTEOARTHRITIS [None]
  - LIGAMENT SPRAIN [None]
  - INTERMITTENT CLAUDICATION [None]
